FAERS Safety Report 12493910 (Version 1)
Quarter: 2016Q2

REPORT INFORMATION
  Report Type: Spontaneous
  Country: US (occurrence: US)
  Receive Date: 20160623
  Receipt Date: 20160623
  Transmission Date: 20160815
  Serious: No
  Sender: FDA-Public Use
  Company Number: US-VIVUS-2016V1000017

PATIENT
  Age: 72 Year
  Sex: Male
  Weight: 65.83 kg

DRUGS (2)
  1. STENDRA [Suspect]
     Active Substance: AVANAFIL
     Indication: SEXUAL ACTIVITY INCREASED
     Route: 048
     Dates: start: 201511
  2. STENDRA [Suspect]
     Active Substance: AVANAFIL
     Route: 048
     Dates: start: 201511, end: 201511

REACTIONS (2)
  - Drug effect decreased [Recovered/Resolved]
  - Dyspepsia [Recovered/Resolved]

NARRATIVE: CASE EVENT DATE: 2015
